FAERS Safety Report 10060943 (Version 2)
Quarter: 2014Q2

REPORT INFORMATION
  Report Type: Report from Study
  Country: CA (occurrence: CA)
  Receive Date: 20140404
  Receipt Date: 20140404
  Transmission Date: 20141212
  Serious: Yes (Other)
  Sender: FDA-Public Use
  Company Number: PHHY2014CA019966

PATIENT
  Sex: Female

DRUGS (7)
  1. ACLASTA [Suspect]
     Indication: OSTEOPOROSIS
     Dosage: UNK UKN, YEARLY
     Route: 042
     Dates: start: 20090507
  2. ACLASTA [Suspect]
     Dosage: UNK UKN, YEARLY
     Route: 042
     Dates: start: 20100505
  3. ACLASTA [Suspect]
     Dosage: UNK UKN, YEARLY
     Route: 042
     Dates: start: 20110512
  4. ACLASTA [Suspect]
     Dosage: UNK UKN, YEARLY
     Route: 042
     Dates: start: 20120509
  5. ACLASTA [Suspect]
     Dosage: UNK UKN, YEARLY
     Route: 042
     Dates: start: 20130510
  6. CALCIUM [Concomitant]
     Dosage: 500 UKN, DAILY
  7. VITAMIN D3 [Concomitant]
     Dosage: 10000 IU, QW

REACTIONS (2)
  - Thoracic vertebral fracture [Unknown]
  - Drug ineffective [Unknown]
